FAERS Safety Report 12286955 (Version 1)
Quarter: 2016Q2

REPORT INFORMATION
  Report Type: Spontaneous
  Country: US (occurrence: US)
  Receive Date: 20160420
  Receipt Date: 20160420
  Transmission Date: 20160815
  Serious: Yes (Other)
  Sender: FDA-Public Use
  Company Number: US-IMPAX LABORATORIES, INC-2016-IPXL-00381

PATIENT
  Age: 39 Year
  Sex: Male

DRUGS (1)
  1. PHENYTOIN CHEWABLE [Suspect]
     Active Substance: PHENYTOIN
     Indication: SEIZURE
     Dosage: 400 MG, DAILY
     Route: 065

REACTIONS (2)
  - Vasculitis [Recovered/Resolved]
  - Pulmonary vasculitis [Recovered/Resolved]
